FAERS Safety Report 4544253-8 (Version None)
Quarter: 2004Q4

REPORT INFORMATION
  Report Type: 
  Country: None (occurrence: None)
  Receive Date: 20041230
  Receipt Date: 20041217
  Transmission Date: 20050328
  Serious: Yes (Hospitalization)
  Sender: FDA-Public Use
  Company Number: HQWYE287116AUG04

PATIENT
  Age: 49 Year
  Sex: Male

DRUGS (1)
  1. RAPAMUNE [Suspect]
     Indication: PROPHYLAXIS AGAINST TRANSPLANT REJECTION
     Dosage: ALTERNATING 1.5 MG AND 2 MG EVERY OTHER DAY
     Dates: start: 20021211

REACTIONS (5)
  - BLOOD CREATININE INCREASED [None]
  - CONDITION AGGRAVATED [None]
  - DYSPNOEA [None]
  - HYPERTENSION [None]
  - OEDEMA PERIPHERAL [None]
